FAERS Safety Report 11268199 (Version 1)
Quarter: 2015Q3

REPORT INFORMATION
  Report Type: Spontaneous
  Country: FR (occurrence: FR)
  Receive Date: 20150714
  Receipt Date: 20150714
  Transmission Date: 20151125
  Serious: Yes (Hospitalization)
  Sender: FDA-Public Use
  Company Number: FR-ROCHE-1606889

PATIENT
  Age: 80 Year
  Sex: Female

DRUGS (10)
  1. ROCEPHINE [Suspect]
     Active Substance: CEFTRIAXONE SODIUM
     Indication: KLEBSIELLA SEPSIS
     Route: 042
     Dates: start: 20150615, end: 20150617
  2. CANCIDAS [Suspect]
     Active Substance: CASPOFUNGIN ACETATE
     Indication: CANDIDA INFECTION
     Route: 042
     Dates: start: 20150614, end: 20150616
  3. IMOVANE [Concomitant]
     Active Substance: ZOPICLONE
  4. LOPERAMIDE [Concomitant]
     Active Substance: LOPERAMIDE
  5. PANTOPRAZOLE [Concomitant]
     Active Substance: PANTOPRAZOLE SODIUM
  6. RISPERDAL [Concomitant]
     Active Substance: RISPERIDONE
  7. DOLIPRANE [Concomitant]
     Active Substance: ACETAMINOPHEN
  8. TIORFAN [Concomitant]
     Active Substance: RACECADOTRIL
  9. TARGOCID [Concomitant]
     Active Substance: TEICOPLANIN
  10. DIFFU K [Concomitant]
     Active Substance: POTASSIUM CHLORIDE

REACTIONS (2)
  - Pancytopenia [Recovered/Resolved]
  - Arthralgia [Recovering/Resolving]

NARRATIVE: CASE EVENT DATE: 20150616
